FAERS Safety Report 9317129 (Version 1)
Quarter: 2013Q2

REPORT INFORMATION
  Report Type: Spontaneous
  Country: US (occurrence: US)
  Receive Date: 20130530
  Receipt Date: 20130530
  Transmission Date: 20140414
  Serious: No
  Sender: FDA-Public Use
  Company Number: US-NOVEN-12US005073

PATIENT
  Age: 11 Year
  Sex: Male
  Weight: 58.96 kg

DRUGS (4)
  1. DAYTRANA [Suspect]
     Indication: AUTISM
     Dosage: 10 MG, UNK
     Route: 062
     Dates: start: 20120803
  2. DAYTRANA [Suspect]
     Indication: IMPULSIVE BEHAVIOUR
  3. DAYTRANA [Suspect]
     Indication: PSYCHOMOTOR HYPERACTIVITY
  4. SINGULAIR [Concomitant]
     Indication: SEASONAL ALLERGY
     Dosage: 5 MG, PRN
     Route: 048

REACTIONS (4)
  - Incorrect drug administration duration [Not Recovered/Not Resolved]
  - Off label use [Not Recovered/Not Resolved]
  - Product quality issue [Not Recovered/Not Resolved]
  - No adverse event [None]
